FAERS Safety Report 8804892 (Version 1)
Quarter: 2012Q4

REPORT INFORMATION
  Report Type: 
  Country: US (occurrence: US)
  Receive Date: 20120924
  Receipt Date: 20120924
  Transmission Date: 20130627
  Serious: No
  Sender: FDA-Public Use
  Company Number: US-009507513-1208USA012307

PATIENT
  Sex: Female

DRUGS (5)
  1. VICTRELIS [Suspect]
     Indication: HEPATITIS C
     Dosage: 800 mg, tid
     Route: 050
  2. RIBAVIRIN (WARRICK) [Suspect]
     Indication: HEPATITIS C
     Dosage: 400 mg, UNK
     Route: 048
  3. PEGASYS [Suspect]
     Indication: HEPATITIS C
  4. NEXIUM [Concomitant]
     Dosage: 20 mg, UNK
     Route: 048
  5. THERAPY UNSPECIFIED [Concomitant]
     Indication: BLOOD PRESSURE

REACTIONS (9)
  - Drug ineffective [Unknown]
  - Chest pain [Unknown]
  - Dyspnoea [Unknown]
  - Hyperhidrosis [Unknown]
  - Pain in extremity [Unknown]
  - Hypothyroidism [Unknown]
  - Pleurisy [Unknown]
  - Recurring skin boils [Unknown]
  - Dental caries [Unknown]
